FAERS Safety Report 7452164-3 (Version None)
Quarter: 2011Q2

REPORT INFORMATION
  Report Type: 
  Country: None (occurrence: None)
  Receive Date: 20110502
  Receipt Date: 20110426
  Transmission Date: 20111010
  Serious: Yes (Other)
  Sender: FDA-Public Use
  Company Number: US-PFIZER INC-2011090056

PATIENT
  Sex: Male
  Weight: 101.59 kg

DRUGS (4)
  1. LISINOPRIL [Concomitant]
     Dosage: 5 MG, UNK
  2. CHANTIX [Suspect]
     Indication: SMOKING CESSATION THERAPY
     Dosage: 0.5 MG, 1X/DAY
     Route: 048
     Dates: start: 20110329, end: 20110101
  3. CHANTIX [Suspect]
     Dosage: 1 MG, 2X/DAY
     Route: 048
     Dates: start: 20110101, end: 20110419
  4. METOPROLOL [Concomitant]
     Dosage: UNK

REACTIONS (6)
  - SWELLING FACE [None]
  - CONSTIPATION [None]
  - RASH [None]
  - BLISTER [None]
  - HAEMORRHAGE [None]
  - SKIN LESION [None]
